FAERS Safety Report 8846515 (Version 1)
Quarter: 2012Q4

REPORT INFORMATION
  Report Type: 
  Country: US (occurrence: US)
  Receive Date: 20121017
  Receipt Date: 20121017
  Transmission Date: 20130627
  Serious: Yes (Hospitalization)
  Sender: FDA-Public Use
  Company Number: US-GLAXOSMITHKLINE-A0775984A

PATIENT
  Age: 76 Year
  Sex: Female
  Weight: 97.3 kg

DRUGS (1)
  1. AVANDIA [Suspect]
     Indication: TYPE 2 DIABETES MELLITUS
     Dosage: 8MG Per day
     Route: 048
     Dates: start: 2005, end: 2007

REACTIONS (8)
  - Cerebrovascular accident [Not Recovered/Not Resolved]
  - Renal failure acute [Unknown]
  - Renal disorder [Unknown]
  - Dizziness [Unknown]
  - Injury [Unknown]
  - Dysstasia [Unknown]
  - Blindness [Unknown]
  - Bladder disorder [Unknown]
